FAERS Safety Report 9687233 (Version 1)
Quarter: 2013Q4

REPORT INFORMATION
  Report Type: Spontaneous
  Country: US (occurrence: US)
  Receive Date: 20131113
  Receipt Date: 20131113
  Transmission Date: 20140711
  Serious: Yes (Hospitalization)
  Sender: FDA-Public Use
  Company Number: US-ROCHE-1299150

PATIENT
  Sex: Female

DRUGS (3)
  1. XELODA [Suspect]
     Indication: BREAST CANCER METASTATIC
     Route: 065
  2. CARBOPLATIN [Concomitant]
     Indication: BREAST CANCER METASTATIC
  3. GEMZAR [Concomitant]
     Indication: BREAST CANCER METASTATIC

REACTIONS (5)
  - Gastrointestinal obstruction [Unknown]
  - Diarrhoea [Unknown]
  - Vomiting [Unknown]
  - Skin exfoliation [Unknown]
  - Drug effect incomplete [Unknown]
